FAERS Safety Report 13031716 (Version 1)
Quarter: 2016Q4

REPORT INFORMATION
  Report Type: Spontaneous
  Country: GB (occurrence: GB)
  Receive Date: 20161215
  Receipt Date: 20161215
  Transmission Date: 20170207
  Serious: Yes (Other)
  Sender: FDA-Public Use
  Company Number: GB-BAYER-2016-234835

PATIENT
  Age: 28 Year
  Sex: Female
  Weight: 52 kg

DRUGS (5)
  1. MIRENA [Suspect]
     Active Substance: LEVONORGESTREL
     Indication: DYSMENORRHOEA
  2. DOXYCYCLINE. [Concomitant]
     Active Substance: DOXYCYCLINE
  3. OXYBUTYNIN [Concomitant]
     Active Substance: OXYBUTYNIN
  4. MIRENA [Suspect]
     Active Substance: LEVONORGESTREL
     Indication: CONTRACEPTION
     Dosage: 20 MCG/24HR, CONT
     Route: 015
     Dates: start: 201608, end: 201609
  5. MIRENA [Suspect]
     Active Substance: LEVONORGESTREL

REACTIONS (5)
  - Vaginal haemorrhage [Recovered/Resolved with Sequelae]
  - Eczema [Recovering/Resolving]
  - Fatigue [Recovered/Resolved with Sequelae]
  - Vulvovaginal dryness [Recovered/Resolved with Sequelae]
  - Malaise [Recovering/Resolving]

NARRATIVE: CASE EVENT DATE: 201608
